FAERS Safety Report 26022982 (Version 3)
Quarter: 2025Q4

REPORT INFORMATION
  Report Type: Spontaneous
  Country: EU (occurrence: EU)
  Receive Date: 20251110
  Receipt Date: 20251114
  Transmission Date: 20260117
  Serious: Yes (Other)
  Sender: BOEHRINGER INGELHEIM
  Company Number: None

PATIENT
  Age: 79 Year
  Sex: Male
  Weight: 70.5 kg

DRUGS (3)
  1. OFEV [Suspect]
     Active Substance: NINTEDANIB
     Indication: Pulmonary fibrosis
     Dosage: FROM 2021 TO 27 OCTOBER 2025, TOOK NINTEDANIB 150 MG TWICE DAILY (ONE CAPSULE IN THE MORNING AND ONE IN THE EVENING); FROM 28 OCTOBER 2025 TO 30 OCTOBER 2025, TOOK NINTEDANIB 100 MG IN THE MORNING AND 150 MG IN THE EVENING.?START DATE OF TREATMENT ASSIGNED BY THE COMPETENT AUTHORITY.
     Dates: start: 20210101, end: 20251027
  2. OFEV [Suspect]
     Active Substance: NINTEDANIB
     Dosage: FROM 2021 TO 27 OCTOBER 2025, TOOK NINTEDANIB 150 MG TWICE DAILY (ONE CAPSULE IN THE MORNING AND ONE IN THE EVENING); FROM 28 OCTOBER 2025 TO 30 OCTOBER 2025, TOOK NINTEDANIB 100 MG IN THE MORNING AND 150 MG IN THE EVENING.?START DATE OF TREATMENT ASSIGNED BY THE COMPETENT AUTHORITY.
     Dates: start: 20251028, end: 20251030
  3. OLMESARTAN MEDOXOMIL [Concomitant]
     Active Substance: OLMESARTAN MEDOXOMIL
     Indication: Product used for unknown indication

REACTIONS (1)
  - Subdural haematoma [Unknown]

NARRATIVE: CASE EVENT DATE: 20251018
